FAERS Safety Report 9883728 (Version 2)
Quarter: 2014Q1

REPORT INFORMATION
  Report Type: Spontaneous
  Country: IT (occurrence: IT)
  Receive Date: 20140210
  Receipt Date: 20140221
  Transmission Date: 20141002
  Serious: Yes (Other)
  Sender: FDA-Public Use
  Company Number: IT-009507513-1402ITA002339

PATIENT
  Age: 83 Year
  Sex: Female

DRUGS (9)
  1. LORTAAN 50 MG COMPRESSE RIVESTITE CON FILM [Suspect]
     Indication: HYPERTENSION
     Dosage: 1 DF, QD
     Route: 048
     Dates: start: 20130101, end: 20131213
  2. LORTAAN 50 MG COMPRESSE RIVESTITE CON FILM [Suspect]
     Dosage: STRENGTH UNKNOWN
     Route: 048
  3. NORVASC [Suspect]
     Indication: HYPERTENSION
     Dosage: 5 MG, QD
     Route: 048
     Dates: end: 20131213
  4. NORVASC [Suspect]
     Dosage: 2 DF, QD
     Route: 048
     Dates: start: 20131213, end: 20131213
  5. ALLOPURINOL [Concomitant]
     Dosage: 100 MG, UNK
     Route: 048
  6. CARDICOR [Concomitant]
     Route: 048
  7. COUMADIN [Concomitant]
     Route: 048
  8. LANOXIN [Concomitant]
     Dosage: 1 DF, UNK
     Route: 048
  9. ZOLOFT [Concomitant]
     Dosage: 1 DF, UNK
     Route: 048

REACTIONS (3)
  - Hypertensive crisis [Recovered/Resolved]
  - Blood pressure increased [Recovered/Resolved]
  - Headache [Recovered/Resolved]
